FAERS Safety Report 19225143 (Version 5)
Quarter: 2021Q3

REPORT INFORMATION
  Report Type: Spontaneous
  Country: CA (occurrence: CA)
  Receive Date: 20210506
  Receipt Date: 20210831
  Transmission Date: 20211014
  Serious: Yes (Hospitalization, Other)
  Sender: FDA-Public Use
  Company Number: CA-PFIZER INC-2021470599

PATIENT
  Age: 47 Year
  Sex: Female

DRUGS (24)
  1. RISPERIDONE. [Interacting]
     Active Substance: RISPERIDONE
     Indication: AFFECTIVE DISORDER
     Dosage: 1 MG, 1X/DAY
     Route: 048
  2. QUETIAPINE. [Interacting]
     Active Substance: QUETIAPINE
     Dosage: EXTENDED?RELEASE AT BEDTIME
     Route: 048
  3. SALBUTAMOL [Concomitant]
     Active Substance: ALBUTEROL
     Indication: CHRONIC OBSTRUCTIVE PULMONARY DISEASE
     Dosage: 200 UG, 2X/DAY
     Route: 055
  4. FLUOXETINE HCL [Interacting]
     Active Substance: FLUOXETINE HYDROCHLORIDE
     Dosage: 40 MG, 1X/DAY
     Route: 048
  5. DOXEPIN [Interacting]
     Active Substance: DOXEPIN
     Dosage: 150 MG, 1X/DAY
     Route: 048
  6. DIVALPROEX [Interacting]
     Active Substance: DIVALPROEX SODIUM
     Dosage: 500 MG, 1X/DAY (500 MG AT BEDTIME)
     Route: 048
  7. TIOTROPIUM [Concomitant]
     Active Substance: TIOTROPIUM
     Indication: CHRONIC OBSTRUCTIVE PULMONARY DISEASE
     Dosage: 5 UG, 1X/DAY
     Route: 055
  8. ESTRADIOL. [Concomitant]
     Active Substance: ESTRADIOL
     Indication: ENDOMETRIOSIS
     Dosage: 0.5 MG, 1X/DAY
     Route: 048
  9. DOXEPIN [Interacting]
     Active Substance: DOXEPIN
     Dosage: 100 MG, 1X/DAY
     Route: 048
  10. METHADONE [Interacting]
     Active Substance: METHADONE HYDROCHLORIDE
     Indication: DRUG USE DISORDER
     Dosage: 75 MG, 1X/DAY
     Route: 048
  11. LORAZEPAM. [Interacting]
     Active Substance: LORAZEPAM
     Indication: ANXIETY
     Dosage: 3 DOSES OF LORAZEPAM 2 MG
     Route: 048
  12. DOXEPIN [Interacting]
     Active Substance: DOXEPIN
     Indication: MAJOR DEPRESSION
     Dosage: 50 MG, 1X/DAY
     Route: 048
  13. ATENOLOL. [Concomitant]
     Active Substance: ATENOLOL
     Indication: HYPERTENSION
     Dosage: 50 MG, 1X/DAY
     Route: 048
  14. GABAPENTIN. [Interacting]
     Active Substance: GABAPENTIN
     Indication: SCOLIOSIS
  15. FLUOXETINE HCL [Interacting]
     Active Substance: FLUOXETINE HYDROCHLORIDE
     Dosage: 80 MG, 1X/DAY
     Route: 048
  16. DIVALPROEX [Interacting]
     Active Substance: DIVALPROEX SODIUM
     Indication: AFFECTIVE DISORDER
     Dosage: 250 MG, 1X/DAY (250 MG IN THE MORNING)
     Route: 048
  17. CYCLOBENZAPRINE. [Interacting]
     Active Substance: CYCLOBENZAPRINE
     Indication: PAIN
     Dosage: 10 MG, 2X/DAY
     Route: 048
  18. QUETIAPINE. [Interacting]
     Active Substance: QUETIAPINE
     Indication: MAJOR DEPRESSION
     Dosage: 25 TO 50 MG IMMEDIATE?RELEASE 4 TIMES DAILY AS NEEDED
  19. GABAPENTIN. [Suspect]
     Active Substance: GABAPENTIN
     Indication: PAIN
     Dosage: 600 MG, 4X/DAY
     Route: 048
  20. LORAZEPAM. [Interacting]
     Active Substance: LORAZEPAM
     Indication: WITHDRAWAL SYNDROME
     Dosage: 1 TO 2 MG PO 4 TIMES DAILY AS NEEDED
     Route: 048
  21. FLUOXETINE HCL [Interacting]
     Active Substance: FLUOXETINE HYDROCHLORIDE
     Indication: MAJOR DEPRESSION
     Dosage: 20 MG, 1X/DAY
     Route: 048
  22. FLUOXETINE HCL [Interacting]
     Active Substance: FLUOXETINE HYDROCHLORIDE
     Dosage: 60 MG, 1X/DAY
     Route: 048
  23. NAPROXEN. [Concomitant]
     Active Substance: NAPROXEN
     Indication: PAIN
     Dosage: 500 MG, 2X/DAY
     Route: 048
  24. FUROSEMIDE. [Concomitant]
     Active Substance: FUROSEMIDE
     Indication: OEDEMA PERIPHERAL
     Dosage: 40 MG, 1X/DAY
     Route: 048

REACTIONS (4)
  - Drug interaction [Recovering/Resolving]
  - Toxicity to various agents [Recovering/Resolving]
  - Depressed level of consciousness [Recovering/Resolving]
  - Respiratory depression [Recovering/Resolving]
